FAERS Safety Report 7701163-2 (Version None)
Quarter: 2011Q3

REPORT INFORMATION
  Report Type: 
  Country: None (occurrence: None)
  Receive Date: 20110822
  Receipt Date: 20110812
  Transmission Date: 20111222
  Serious: Yes (Hospitalization, Other)
  Sender: FDA-Public Use
  Company Number: US-BAXTER-2011BH025236

PATIENT
  Sex: Female

DRUGS (2)
  1. DIANEAL [Suspect]
     Indication: PERITONEAL DIALYSIS
     Route: 033
  2. PAIN MEDICATION [Suspect]
     Indication: PAIN
     Route: 065

REACTIONS (3)
  - PAIN IN EXTREMITY [None]
  - ADVERSE DRUG REACTION [None]
  - FALL [None]
